FAERS Safety Report 9519557 (Version 1)
Quarter: 2013Q3

REPORT INFORMATION
  Report Type: Spontaneous
  Country: FR (occurrence: FR)
  Receive Date: 20130912
  Receipt Date: 20130912
  Transmission Date: 20140515
  Serious: Yes (Death, Other)
  Sender: FDA-Public Use
  Company Number: PHHY2013FR099754

PATIENT
  Age: 37 Year
  Sex: Male

DRUGS (8)
  1. 5-FLUOROURACIL [Suspect]
     Indication: BLADDER ADENOCARCINOMA STAGE UNSPECIFIED
     Dosage: 400 MG/M2
     Route: 040
  2. 5-FLUOROURACIL [Suspect]
     Dosage: 2400 MG, UNK
  3. 5-FLUOROURACIL [Suspect]
     Dosage: 400 MG/M2, UNK
     Route: 040
  4. 5-FLUOROURACIL [Suspect]
     Dosage: 1200 MG, UNK
  5. IRINOTECAN [Suspect]
     Indication: BLADDER ADENOCARCINOMA STAGE UNSPECIFIED
     Dosage: 90 MG/M2, UNK
  6. CAPECITABINE [Suspect]
     Indication: CHEMOTHERAPY
     Dosage: 2000 MG/M2/DAY
  7. OXALIPLATIN [Suspect]
     Indication: CHEMOTHERAPY
     Dosage: 130 MG/M2, UNK
  8. BEVACIZUMAB [Suspect]
     Indication: CHEMOTHERAPY
     Dosage: 5 MG/KG, UNK

REACTIONS (8)
  - Shock haemorrhagic [Fatal]
  - Arterial injury [Fatal]
  - Bladder adenocarcinoma recurrent [Unknown]
  - Bladder adenocarcinoma stage unspecified [Unknown]
  - Malignant neoplasm progression [Unknown]
  - Neutropenia [Unknown]
  - Nausea [Unknown]
  - Vomiting [Unknown]
